FAERS Safety Report 17877493 (Version 3)
Quarter: 2020Q2

REPORT INFORMATION
  Report Type: Report from Study
  Country: CA (occurrence: CA)
  Receive Date: 20200609
  Receipt Date: 20200629
  Transmission Date: 20200714
  Serious: Yes (Hospitalization)
  Sender: FDA-Public Use
  Company Number: CA-EISAI MEDICAL RESEARCH-EC-2020-074492

PATIENT
  Age: 40 Year
  Sex: Female
  Weight: 100.6 kg

DRUGS (25)
  1. EMLA [Concomitant]
     Active Substance: LIDOCAINE\PRILOCAINE
     Dates: start: 20181206
  2. NUVARING [Concomitant]
     Active Substance: ETHINYL ESTRADIOL\ETONOGESTREL
  3. NAPROXEN. [Concomitant]
     Active Substance: NAPROXEN
     Dates: start: 199601
  4. TYLENOL [Concomitant]
     Active Substance: ACETAMINOPHEN
     Dates: start: 20190411
  5. TUMS [Concomitant]
     Active Substance: CALCIUM CARBONATE
     Dates: start: 201701
  6. VANCOMYCIN [Concomitant]
     Active Substance: VANCOMYCIN
     Dates: start: 20200424
  7. LENVATINIB [Suspect]
     Active Substance: LENVATINIB
     Indication: MALIGNANT MELANOMA STAGE III
     Dosage: FLUCTUATED DOSAGE, STARTING DOSE AT 20MG
     Route: 048
     Dates: start: 20190409, end: 20200320
  8. LENVATINIB [Suspect]
     Active Substance: LENVATINIB
     Indication: MALIGNANT MELANOMA STAGE IV
     Route: 048
     Dates: start: 20200321, end: 20200513
  9. PEMBROLIZUMAB. [Suspect]
     Active Substance: PEMBROLIZUMAB
     Indication: MALIGNANT MELANOMA STAGE III
     Route: 041
     Dates: start: 20190409, end: 20200331
  10. NUVARING [Concomitant]
     Active Substance: ETHINYL ESTRADIOL\ETONOGESTREL
     Dates: start: 201704
  11. FLOVENT [Concomitant]
     Active Substance: FLUTICASONE PROPIONATE
     Dates: start: 199001
  12. NOVO SALBUTAMOL [Concomitant]
     Dates: start: 199001
  13. TRAZODONE HYDROCHLORIDE. [Concomitant]
     Active Substance: TRAZODONE HYDROCHLORIDE
     Dates: start: 20170412
  14. GRAVOL [Concomitant]
     Active Substance: DIMENHYDRINATE
     Dates: start: 20191104
  15. OMEPRAZOLE. [Concomitant]
     Active Substance: OMEPRAZOLE
     Dates: start: 20200106
  16. DIPHENHYDRAMINE;HYDROCORTISONE;NYSTATIN [Concomitant]
     Dates: start: 20190516
  17. IMODIUM [Concomitant]
     Active Substance: LOPERAMIDE HYDROCHLORIDE
     Dates: start: 20190603
  18. METOPROLOL. [Concomitant]
     Active Substance: METOPROLOL
     Dates: start: 20190804
  19. SERTRALINE HYDROCHLORIDE. [Concomitant]
     Active Substance: SERTRALINE HYDROCHLORIDE
     Dates: start: 201003
  20. CENTRUM WOMEN [Concomitant]
     Active Substance: VITAMINS
     Dates: start: 199001
  21. PEMBROLIZUMAB. [Suspect]
     Active Substance: PEMBROLIZUMAB
     Indication: MALIGNANT MELANOMA STAGE IV
     Route: 041
     Dates: start: 20200421, end: 20200421
  22. BENADRYL [Concomitant]
     Active Substance: DIPHENHYDRAMINE HYDROCHLORIDE
     Dates: start: 20190701
  23. PROCHLORAZINE [Concomitant]
     Dates: start: 20190725
  24. MAXALT [Concomitant]
     Active Substance: RIZATRIPTAN BENZOATE
     Dates: start: 201401
  25. AMLODIPINE [Concomitant]
     Active Substance: AMLODIPINE BESYLATE
     Dates: start: 20190725

REACTIONS (1)
  - Diarrhoea [Recovered/Resolved]

NARRATIVE: CASE EVENT DATE: 20200504
